FAERS Safety Report 9368901 (Version 1)
Quarter: 2013Q2

REPORT INFORMATION
  Report Type: Spontaneous
  Country: IL (occurrence: IL)
  Receive Date: 20130626
  Receipt Date: 20130626
  Transmission Date: 20140414
  Serious: Yes (Hospitalization)
  Sender: FDA-Public Use
  Company Number: IL-AMGEN-ISRSP2013044611

PATIENT
  Sex: Female

DRUGS (4)
  1. FILGRASTIM [Suspect]
     Indication: PROPHYLAXIS
     Dosage: UNK
     Route: 065
  2. HERCEPTIN [Suspect]
     Indication: BREAST CANCER
     Dosage: UNK
  3. TAXOTERE [Suspect]
     Indication: BREAST CANCER
     Dosage: UNK
     Route: 065
  4. CARBOPLATIN [Suspect]
     Indication: BREAST CANCER
     Dosage: UNK
     Route: 065

REACTIONS (2)
  - Neutropenia [Unknown]
  - Performance status decreased [Unknown]
